FAERS Safety Report 17551369 (Version 1)
Quarter: 2020Q1

REPORT INFORMATION
  Report Type: Spontaneous
  Country: US (occurrence: US)
  Receive Date: 20200317
  Receipt Date: 20200317
  Transmission Date: 20200409
  Serious: No
  Sender: FDA-Public Use
  Company Number: US-UPSHER-SMITH LABORATORIES, LLC-2020USL00060

PATIENT
  Age: 79 Year
  Sex: Male
  Weight: 111.11 kg

DRUGS (14)
  1. VITAMIN D2 [Concomitant]
     Active Substance: ERGOCALCIFEROL
  2. PREVALITE [Suspect]
     Active Substance: CHOLESTYRAMINE
     Dosage: 4 G, 2X/DAY
     Route: 048
     Dates: start: 201912
  3. ZYTIGA [Concomitant]
     Active Substance: ABIRATERONE ACETATE
  4. WARFARIN [Concomitant]
     Active Substance: WARFARIN
  5. PREDNISONE. [Concomitant]
     Active Substance: PREDNISONE
  6. METAMUCIL [Concomitant]
     Active Substance: PLANTAGO SEED
  7. METOPROLOL TARTRATE. [Concomitant]
     Active Substance: METOPROLOL TARTRATE
  8. DIAZEPAM. [Concomitant]
     Active Substance: DIAZEPAM
  9. TAMSULOSIN HCL [Concomitant]
     Active Substance: TAMSULOSIN HYDROCHLORIDE
  10. CYANOCOBALAMIN. [Concomitant]
     Active Substance: CYANOCOBALAMIN
  11. MAGNESIUM IV [Concomitant]
     Route: 042
  12. PREVALITE [Suspect]
     Active Substance: CHOLESTYRAMINE
     Indication: PROPHYLAXIS AGAINST DIARRHOEA
     Dosage: 4 G, 4X/DAY
     Route: 048
     Dates: start: 201912
  13. ATORVASTATIN [Concomitant]
     Active Substance: ATORVASTATIN
  14. METFORMIN HYDROCHLORIDE. [Concomitant]
     Active Substance: METFORMIN HYDROCHLORIDE

REACTIONS (2)
  - International normalised ratio decreased [Not Recovered/Not Resolved]
  - Inappropriate schedule of product administration [Not Recovered/Not Resolved]

NARRATIVE: CASE EVENT DATE: 201912
